FAERS Safety Report 7893078-4 (Version None)
Quarter: 2011Q4

REPORT INFORMATION
  Report Type: 
  Country: None (occurrence: None)
  Receive Date: 20111104
  Receipt Date: 20111026
  Transmission Date: 20120403
  Serious: Yes (Death)
  Sender: FDA-Public Use
  Company Number: CA-PFIZER INC-2011268477

PATIENT
  Age: 50 Year
  Sex: Male

DRUGS (9)
  1. ALPRAZOLAM [Suspect]
     Dosage: UNK
  2. NORTRIPTYLINE HCL [Suspect]
     Dosage: UNK
  3. ETHANOL [Suspect]
     Dosage: UNK
  4. OXYCODONE [Suspect]
     Dosage: UNK
  5. TEMAZEPAM [Suspect]
     Dosage: UNK
  6. ENBREL [Suspect]
     Dosage: 50 MG, 2 TIMES/WK
     Route: 058
  7. AMITRIPTYLINE [Suspect]
     Dosage: UNK
  8. CITALOPRAM [Suspect]
     Dosage: UNK
  9. OXAZEPAM [Suspect]
     Dosage: UNK

REACTIONS (1)
  - TOXICITY TO VARIOUS AGENTS [None]
